FAERS Safety Report 4846900-X (Version None)
Quarter: 2005Q4

REPORT INFORMATION
  Report Type: 
  Country: None (occurrence: None)
  Receive Date: 20051202
  Receipt Date: 20051121
  Transmission Date: 20060501
  Serious: Yes (Hospitalization)
  Sender: FDA-Public Use
  Company Number: 2005158330

PATIENT
  Age: 58 Year
  Sex: Female

DRUGS (2)
  1. ATORVASTATIN CALCIUM [Suspect]
     Indication: DYSLIPIDAEMIA
     Dosage: 10 MG (10 MG, 1 IN 1 D) ORAL
     Route: 048
     Dates: start: 20040501
  2. COTRIM [Suspect]
     Indication: URINARY TRACT INFECTION
     Dates: start: 20040901, end: 20040901

REACTIONS (3)
  - DERMATITIS ALLERGIC [None]
  - ELECTROCARDIOGRAM QT CORRECTED INTERVAL PROLONGED [None]
  - URINARY TRACT INFECTION [None]
